FAERS Safety Report 15201447 (Version 3)
Quarter: 2019Q1

REPORT INFORMATION
  Report Type: Report from Study
  Country: DE (occurrence: DE)
  Receive Date: 20180726
  Receipt Date: 20190301
  Transmission Date: 20190417
  Serious: Yes (Other)
  Sender: FDA-Public Use
  Company Number: DE-ACCORD-069970

PATIENT
  Age: 73 Year
  Sex: Male
  Weight: 107 kg

DRUGS (5)
  1. TORASEMIDE [Concomitant]
     Active Substance: TORSEMIDE
     Indication: CARDIAC FAILURE
     Dosage: 5 MG, QD
     Route: 048
     Dates: start: 201105
  2. EPLERENONE. [Suspect]
     Active Substance: EPLERENONE
     Indication: CARDIAC FAILURE
     Dosage: 25 MG MILLIGRAM(S) EVERY DAY
     Route: 048
     Dates: start: 20151210
  3. METOPROLOL. [Concomitant]
     Active Substance: METOPROLOL
     Indication: CORONARY ARTERY DISEASE
     Dosage: 47.5 MG, QD
     Route: 048
     Dates: start: 201105
  4. ENTRESTO [Suspect]
     Active Substance: SACUBITRIL\VALSARTAN
     Indication: CARDIAC FAILURE
     Dosage: 200 MG, QD
     Route: 048
     Dates: start: 20161129
  5. ACETYLSALICYLIC ACID [Concomitant]
     Active Substance: ASPIRIN
     Indication: CORONARY ARTERY DISEASE
     Dosage: 100 MG, QD
     Route: 048
     Dates: start: 2011

REACTIONS (3)
  - Glomerular filtration rate decreased [Not Recovered/Not Resolved]
  - Inappropriate schedule of product administration [Unknown]
  - Hyperkalaemia [Recovered/Resolved]

NARRATIVE: CASE EVENT DATE: 20161128
